FAERS Safety Report 9686427 (Version 2)
Quarter: 2013Q4

REPORT INFORMATION
  Report Type: Spontaneous
  Country: US (occurrence: US)
  Receive Date: 20131113
  Receipt Date: 20131120
  Transmission Date: 20140711
  Serious: No
  Sender: FDA-Public Use
  Company Number: US-BAXTER-2013BAX043462

PATIENT
  Age: 69 Year
  Sex: Male
  Weight: 82.63 kg

DRUGS (5)
  1. 0.9% SODIUM CHLORIDE INJECTION [Suspect]
     Indication: CATHETER MANAGEMENT
     Dosage: 8-10 CC FLUSH
     Route: 042
     Dates: start: 20131024, end: 20131024
  2. FLUDEOXYGLUCOSE (18F) [Suspect]
     Indication: POSITRON EMISSION TOMOGRAM
     Dosage: 13.8 MCI
     Route: 042
     Dates: start: 20131024, end: 20131024
  3. FLUDEOXYGLUCOSE (18F) [Suspect]
     Indication: PULMONARY MASS
  4. FLUDEOXYGLUCOSE (18F) [Suspect]
     Indication: LYMPHADENOPATHY MEDIASTINAL
  5. FLUDEOXYGLUCOSE (18F) [Suspect]
     Indication: SCAN

REACTIONS (2)
  - Feeling hot [Recovered/Resolved]
  - Hyperhidrosis [Recovered/Resolved]
